FAERS Safety Report 6758927-1 (Version None)
Quarter: 2010Q2

REPORT INFORMATION
  Report Type: 
  Country: None (occurrence: None)
  Receive Date: 20100603
  Receipt Date: 20100511
  Transmission Date: 20101027
  Serious: No
  Sender: FDA-Public Use
  Company Number: APP201000501

PATIENT
  Age: 76 Year
  Sex: Female

DRUGS (1)
  1. METHYLPREDNISOLONE SODIUM SUCCINATE [Suspect]
     Indication: VISUAL ACUITY REDUCED
     Dosage: 500 MG, 1 IN 1 D, INTRAVENOUS
     Route: 042

REACTIONS (4)
  - BUNDLE BRANCH BLOCK LEFT [None]
  - CARDIAC ENZYMES INCREASED [None]
  - CHEST PAIN [None]
  - DYSPNOEA [None]
